FAERS Safety Report 5179929-5 (Version None)
Quarter: 2006Q4

REPORT INFORMATION
  Report Type: 
  Country: None (occurrence: None)
  Receive Date: 20061212
  Receipt Date: 20061201
  Transmission Date: 20070319
  Serious: Yes (Hospitalization)
  Sender: FDA-Public Use
  Company Number: APP200600309

PATIENT
  Age: 29 Year
  Sex: Female

DRUGS (3)
  1. PROFASI HP (CHORIONIC GONADOTROPHIN FOR INJECTION, USP) [Suspect]
     Indication: INFERTILITY
     Dosage: (10000 USP UNITS, ONCE)
  2. TRIPTORELIN [Concomitant]
  3. MENOGON (MENOTROPHIN) [Concomitant]

REACTIONS (12)
  - ALANINE AMINOTRANSFERASE INCREASED [None]
  - ASCITES [None]
  - ASPARTATE AMINOTRANSFERASE INCREASED [None]
  - BLOOD ALBUMIN DECREASED [None]
  - HAEMATOCRIT DECREASED [None]
  - HYDROTHORAX [None]
  - OVARIAN ENLARGEMENT [None]
  - OVARIAN HYPERSTIMULATION SYNDROME [None]
  - PLEURAL EFFUSION [None]
  - PROTEIN TOTAL DECREASED [None]
  - RESPIRATORY ALKALOSIS [None]
  - WHITE BLOOD CELL COUNT INCREASED [None]
